FAERS Safety Report 7750040-X (Version None)
Quarter: 2011Q3

REPORT INFORMATION
  Report Type: 
  Country: None (occurrence: None)
  Receive Date: 20110914
  Receipt Date: 20110831
  Transmission Date: 20111222
  Serious: Yes (Hospitalization, Other)
  Sender: FDA-Public Use
  Company Number: US-CELGENEUS-163-21880-09070586

PATIENT
  Sex: Female
  Weight: 54.026 kg

DRUGS (40)
  1. BENEFIBER [Concomitant]
     Route: 048
     Dates: start: 20090701
  2. VORINOSTAT [Suspect]
     Indication: MULTIPLE MYELOMA
     Dosage: 400 MILLIGRAM
     Route: 048
     Dates: start: 20090604, end: 20090610
  3. VORINOSTAT [Suspect]
     Dosage: 300 MILLIGRAM
     Route: 048
     Dates: start: 20090720, end: 20090805
  4. VORINOSTAT [Suspect]
     Dosage: 40 MILLIGRAM
     Route: 048
     Dates: start: 20090521, end: 20090527
  5. L-CARNITINE [Concomitant]
     Dosage: .5 GRAM
     Route: 048
     Dates: start: 20070822
  6. FOLIC ACID [Concomitant]
     Dosage: 1 MILLIGRAM
     Route: 048
     Dates: start: 20070822
  7. METOPROLOL TARTRATE [Concomitant]
     Route: 048
     Dates: start: 20050302
  8. ATIVAN [Concomitant]
     Route: 065
     Dates: start: 20090519
  9. PRILOSEC [Concomitant]
     Dosage: 20 MILLIGRAM
     Route: 048
     Dates: start: 20090601
  10. LACTOBACILLUS RHAMNOSUS [Concomitant]
     Route: 065
     Dates: start: 20070822
  11. GUAR GUM [Concomitant]
     Route: 065
     Dates: start: 20090701
  12. SEROQUEL [Concomitant]
     Route: 065
     Dates: start: 20090505
  13. VITAMIN TAB [Concomitant]
     Dosage: 1 TABLET
     Route: 048
     Dates: start: 20050301
  14. ATIVAN [Concomitant]
     Dosage: .5 MILLIGRAM
     Route: 048
  15. ASPIRIN [Concomitant]
     Route: 065
     Dates: start: 20090701
  16. ZOLEDRONIC ACID [Concomitant]
     Route: 065
     Dates: start: 20060613
  17. DEXAMETHASONE [Suspect]
     Indication: MULTIPLE MYELOMA
     Dosage: 40 MILLIGRAM
     Route: 048
     Dates: start: 20090521, end: 20090611
  18. DEXAMETHASONE [Suspect]
     Dosage: 40 MILLIGRAM
     Route: 048
     Dates: start: 20090720, end: 20090824
  19. ZOFRAN [Concomitant]
     Dosage: 8 MILLIGRAM
     Route: 048
     Dates: start: 20090519
  20. ACETYLSALICYLIC ACID SRT [Concomitant]
     Dosage: 325 MILLIGRAM
     Route: 048
     Dates: start: 20090701
  21. TRIMETHOBENZAMIDE HYDROCHLORIDE [Concomitant]
     Route: 065
     Dates: start: 20090519
  22. VITAMIN B [Concomitant]
     Dosage: 1 TABLET
     Route: 048
     Dates: start: 20070822
  23. ATIVAN [Concomitant]
     Dosage: 8 MILLIGRAM
     Route: 048
  24. QUETIAPINE FUMARATE [Concomitant]
     Route: 065
     Dates: start: 20090505
  25. REVLIMID [Suspect]
     Dosage: 15 MILLIGRAM
     Route: 048
     Dates: start: 20090817, end: 20090831
  26. DEXAMETHASONE [Suspect]
     Dosage: 40 MILLIGRAM
     Route: 048
     Dates: start: 20090907, end: 20090907
  27. CULTURELLE [Concomitant]
     Route: 048
     Dates: start: 20090624
  28. REVLIMID [Suspect]
     Indication: MULTIPLE MYELOMA
     Dosage: 25 MILLIGRAM
     Route: 048
     Dates: start: 20090521, end: 20090610
  29. REVLIMID [Suspect]
     Dosage: 20 MILLIGRAM
     Route: 048
     Dates: start: 20090624, end: 20090701
  30. DEXAMETHASONE [Suspect]
     Dosage: 40 MILLIGRAM
     Route: 048
     Dates: start: 20090624, end: 20090701
  31. VORINOSTAT [Suspect]
     Dosage: 300 MILLIGRAM
     Route: 048
     Dates: start: 20090817, end: 20090831
  32. NEURONTIN [Concomitant]
     Dosage: 200 MILLIGRAM
     Route: 048
     Dates: start: 20090427
  33. ZOMETA [Concomitant]
     Dosage: 4 MILLIGRAM
     Route: 041
     Dates: start: 20060613
  34. RED BLOOD CELLS [Concomitant]
     Route: 041
     Dates: start: 20090707
  35. REVLIMID [Suspect]
     Dosage: 15 MILLIGRAM
     Route: 048
     Dates: start: 20090720, end: 20090809
  36. VORINOSTAT [Suspect]
     Dosage: 300 MILLIGRAM
     Route: 048
     Dates: start: 20090624, end: 20090630
  37. THIOCTIC ACID [Concomitant]
     Dosage: 400 MILLIGRAM
     Route: 048
     Dates: start: 20070822
  38. IMODIUM MULTI-SYMPTOM RELIEF [Concomitant]
     Dosage: 2 MILLIGRAM
     Route: 048
     Dates: start: 20080221
  39. ACYCLOVIR [Concomitant]
     Dosage: 400 MILLIGRAM
     Route: 048
     Dates: start: 20090624
  40. SIMVASTATIN [Concomitant]
     Dosage: 20 MILLIGRAM
     Route: 048
     Dates: start: 20090707

REACTIONS (5)
  - ELECTROCARDIOGRAM QT PROLONGED [None]
  - EXTRASYSTOLES [None]
  - TROPONIN I INCREASED [None]
  - DIARRHOEA [None]
  - DEHYDRATION [None]
